FAERS Safety Report 4545158-9 (Version None)
Quarter: 2004Q4

REPORT INFORMATION
  Report Type: 
  Country: None (occurrence: None)
  Receive Date: 20041222
  Receipt Date: 20040923
  Transmission Date: 20050328
  Serious: Yes (Hospitalization)
  Sender: FDA-Public Use
  Company Number: USA040979138

PATIENT
  Age: 69 Year
  Sex: Male
  Weight: 125 kg

DRUGS (3)
  1. HUMALOG [Suspect]
     Dates: start: 19940101
  2. ACTOS [Concomitant]
  3. GLUCOPHAGE [Concomitant]

REACTIONS (4)
  - COLONIC OBSTRUCTION [None]
  - DEPRESSION [None]
  - FEELING ABNORMAL [None]
  - GALLBLADDER OPERATION [None]
